FAERS Safety Report 9235905 (Version 1)
Quarter: 2013Q2

REPORT INFORMATION
  Report Type: Spontaneous
  Country: US (occurrence: US)
  Receive Date: 20130417
  Receipt Date: 20130417
  Transmission Date: 20140414
  Serious: Yes (Other)
  Sender: FDA-Public Use
  Company Number: US-ELI_LILLY_AND_COMPANY-US201304001242

PATIENT
  Sex: Male

DRUGS (2)
  1. STRATTERA [Suspect]
     Dosage: 40 MG, UNKNOWN
     Dates: start: 201301
  2. STRATTERA [Suspect]
     Dosage: 60 MG, UNKNOWN
     Dates: end: 201302

REACTIONS (1)
  - Suicidal ideation [Unknown]
